FAERS Safety Report 9286558 (Version 1)
Quarter: 2013Q2

REPORT INFORMATION
  Report Type: Spontaneous
  Country: PL (occurrence: PL)
  Receive Date: 20130513
  Receipt Date: 20130513
  Transmission Date: 20140414
  Serious: Yes (Death, Hospitalization)
  Sender: FDA-Public Use
  Company Number: PL-ROXANE LABORATORIES, INC.-2013-RO-00722RO

PATIENT
  Age: 56 Year
  Sex: Female

DRUGS (9)
  1. CYCLOPHOSPHAMIDE TABLETS USP [Suspect]
     Indication: PLASMA CELL MYELOMA
  2. PREDNISONE [Suspect]
     Indication: PLASMA CELL MYELOMA
  3. DEXAMETHASONE [Suspect]
     Indication: PLASMA CELL MYELOMA
     Dates: start: 200401, end: 200504
  4. VINCRISTINE [Suspect]
     Indication: PLASMA CELL MYELOMA
  5. MELPHALAN [Suspect]
     Indication: PLASMA CELL MYELOMA
  6. MELPHALAN [Suspect]
     Dates: start: 200401, end: 200504
  7. PREDNISOLONE [Suspect]
     Indication: PLASMA CELL MYELOMA
     Dates: start: 200401, end: 200504
  8. THALIDOMIDE [Suspect]
     Indication: PLASMA CELL MYELOMA
     Dates: start: 200401, end: 200504
  9. THALIDOMIDE [Suspect]
     Dates: start: 200505

REACTIONS (4)
  - Cardiopulmonary failure [Fatal]
  - Acute lymphocytic leukaemia [Unknown]
  - Deep vein thrombosis [Unknown]
  - Pulmonary embolism [Unknown]
